FAERS Safety Report 13401540 (Version 1)
Quarter: 2017Q2

REPORT INFORMATION
  Report Type: Spontaneous
  Country: US (occurrence: US)
  Receive Date: 20170404
  Receipt Date: 20170404
  Transmission Date: 20170830
  Serious: No
  Sender: FDA-Public Use
  Company Number: US-ASTRAZENECA-2017SE31736

PATIENT
  Age: 19863 Day
  Sex: Female
  Weight: 55.3 kg

DRUGS (2)
  1. BRILINTA [Suspect]
     Active Substance: TICAGRELOR
     Indication: STENT PLACEMENT
     Route: 048
     Dates: start: 20170320
  2. ASPIRIN. [Concomitant]
     Active Substance: ASPIRIN
     Indication: GENERAL SYMPTOM
     Route: 048
     Dates: start: 20170320

REACTIONS (1)
  - Daydreaming [Not Recovered/Not Resolved]

NARRATIVE: CASE EVENT DATE: 20170321
